FAERS Safety Report 7778067-2 (Version None)
Quarter: 2011Q3

REPORT INFORMATION
  Report Type: 
  Country: None (occurrence: None)
  Receive Date: 20110926
  Receipt Date: 20110921
  Transmission Date: 20111222
  Serious: Yes (Other)
  Sender: FDA-Public Use
  Company Number: US-SANOFI-AVENTIS-2011SA061932

PATIENT
  Age: 41 Year
  Sex: Male

DRUGS (5)
  1. ASPIRIN [Suspect]
     Route: 048
  2. METFORMIN HCL [Concomitant]
     Dates: start: 20110920
  3. INSULIN DETEMIR [Concomitant]
     Indication: TYPE 2 DIABETES MELLITUS
  4. PLAVIX [Suspect]
     Route: 048
  5. PLAVIX [Suspect]
     Route: 048
     Dates: start: 20010101

REACTIONS (4)
  - ANAPHYLACTOID REACTION [None]
  - HYPERTENSION [None]
  - TYPE 2 DIABETES MELLITUS [None]
  - NERVOUS SYSTEM DISORDER [None]
